FAERS Safety Report 7603499-2 (Version None)
Quarter: 2011Q3

REPORT INFORMATION
  Report Type: 
  Country: None (occurrence: None)
  Receive Date: 20110711
  Receipt Date: 20110711
  Transmission Date: 20111222
  Serious: Yes (Other)
  Sender: FDA-Public Use
  Company Number: None

PATIENT
  Age: 54 Year
  Sex: Female
  Weight: 94.3482 kg

DRUGS (1)
  1. URSODIOL [Suspect]
     Indication: BILIARY CIRRHOSIS PRIMARY
     Dosage: 2 CAPSULES DAILY
     Dates: start: 20110404, end: 20110407

REACTIONS (3)
  - HEART RATE INCREASED [None]
  - DYSPNOEA [None]
  - PRODUCT ODOUR ABNORMAL [None]
